FAERS Safety Report 16689070 (Version 1)
Quarter: 2019Q3

REPORT INFORMATION
  Report Type: Spontaneous
  Country: US (occurrence: US)
  Receive Date: 20190809
  Receipt Date: 20190809
  Transmission Date: 20191004
  Serious: Yes (Life-Threatening, Hospitalization, Other)
  Sender: FDA-Public Use
  Company Number: US-MYLANLABS-2019M1073088

PATIENT
  Age: 18 Year
  Sex: Male

DRUGS (4)
  1. ADAPALENE. [Concomitant]
     Active Substance: ADAPALENE
     Route: 061
  2. SULPHAMETHOXAZOLE/TRIMETHOPRIM [Suspect]
     Active Substance: SULFAMETHOXAZOLE\TRIMETHOPRIM
     Indication: ACNE
     Route: 065
  3. DAPSONE. [Concomitant]
     Active Substance: DAPSONE
     Route: 061
  4. BENZOYL PEROXIDE. [Concomitant]
     Active Substance: BENZOYL PEROXIDE
     Route: 061

REACTIONS (6)
  - Acute respiratory failure [Unknown]
  - Pneumothorax [Unknown]
  - Acute respiratory distress syndrome [Unknown]
  - Pneumomediastinum [Unknown]
  - Jugular vein thrombosis [Unknown]
  - Pleural effusion [Unknown]
